FAERS Safety Report 4338273-6 (Version None)
Quarter: 2004Q2

REPORT INFORMATION
  Report Type: 
  Country: None (occurrence: None)
  Receive Date: 20040409
  Receipt Date: 20040115
  Transmission Date: 20050107
  Serious: No
  Sender: FDA-Public Use
  Company Number: A01200400206

PATIENT
  Age: 67 Year
  Sex: Female

DRUGS (3)
  1. PLAQUENIL [Suspect]
     Indication: RHEUMATOID ARTHRITIS
     Dosage: 200 MG BID, ORAL
     Route: 048
  2. METHOTREXATE [Concomitant]
  3. NABUMETONE [Concomitant]

REACTIONS (4)
  - ATRIOVENTRICULAR BLOCK COMPLETE [None]
  - CARDIAC PACEMAKER MALFUNCTION [None]
  - ELECTROCARDIOGRAM PACEMAKER SPIKE [None]
  - PACING THRESHOLD INCREASED [None]
